FAERS Safety Report 16539541 (Version 1)
Quarter: 2019Q3

REPORT INFORMATION
  Report Type: Spontaneous
  Country: US (occurrence: US)
  Receive Date: 20190705
  Receipt Date: 20190705
  Transmission Date: 20191004
  Serious: No
  Sender: FDA-Public Use
  Company Number: None

PATIENT
  Age: 40 Year
  Sex: Male
  Weight: 68.4 kg

DRUGS (3)
  1. ZOLOFT [Concomitant]
     Active Substance: SERTRALINE HYDROCHLORIDE
  2. CLONAZEPAM. [Suspect]
     Active Substance: CLONAZEPAM
     Indication: ANXIETY
     Dosage: ?          QUANTITY:60 TABLET(S);?
     Route: 048
     Dates: start: 20190701, end: 20190705
  3. IRON SUPPLEMENT [Concomitant]
     Active Substance: IRON

REACTIONS (5)
  - Drug ineffective [None]
  - Product quality issue [None]
  - Diarrhoea [None]
  - Headache [None]
  - Product complaint [None]

NARRATIVE: CASE EVENT DATE: 20190704
